FAERS Safety Report 7499510-2 (Version None)
Quarter: 2011Q2

REPORT INFORMATION
  Report Type: 
  Country: None (occurrence: None)
  Receive Date: 20110524
  Receipt Date: 20110519
  Transmission Date: 20111010
  Serious: Yes (Life-Threatening)
  Sender: FDA-Public Use
  Company Number: UA-B.I. PHARMACEUTICALS,INC./RIDGEFIELD-2011-DE-03217BY

PATIENT
  Sex: Female
  Weight: 68 kg

DRUGS (1)
  1. TELMISARTAN [Suspect]
     Indication: HYPERTENSION
     Route: 065
     Dates: start: 20110518, end: 20110519

REACTIONS (2)
  - ANGIOEDEMA [None]
  - DYSPHAGIA [None]
